FAERS Safety Report 17152456 (Version 2)
Quarter: 2020Q3

REPORT INFORMATION
  Report Type: Report from Study
  Country: US (occurrence: US)
  Receive Date: 20191213
  Receipt Date: 20200806
  Transmission Date: 20201102
  Serious: Yes (Hospitalization)
  Sender: FDA-Public Use
  Company Number: US-ACTELION-A-US2018-176520

PATIENT
  Age: 55 Year
  Sex: Female

DRUGS (9)
  1. UPTRAVI [Suspect]
     Active Substance: SELEXIPAG
     Dosage: 400 MCG QAM, 600 MCG QPM
     Route: 048
  2. UPTRAVI [Suspect]
     Active Substance: SELEXIPAG
     Dosage: 600 MCG, UNK
     Route: 048
     Dates: start: 20180815
  3. ADEMPAS [Concomitant]
     Active Substance: RIOCIGUAT
     Dosage: UNK
     Dates: end: 20191203
  4. UPTRAVI [Suspect]
     Active Substance: SELEXIPAG
     Indication: PULMONARY ARTERIAL HYPERTENSION
     Dosage: 400 MCG, BID
     Route: 048
     Dates: start: 20180718, end: 20180817
  5. UPTRAVI [Suspect]
     Active Substance: SELEXIPAG
     Dosage: 200 MCG, BID
     Route: 048
     Dates: start: 20180829
  6. UPTRAVI [Suspect]
     Active Substance: SELEXIPAG
     Dosage: 200 MCG QAM, 400 MCG QPM
     Route: 048
     Dates: start: 20200721
  7. UPTRAVI [Suspect]
     Active Substance: SELEXIPAG
     Dosage: 200 MCG QAM, 800 MCG QPM
     Route: 048
  8. UPTRAVI [Suspect]
     Active Substance: SELEXIPAG
     Dosage: 800 MCG, BID
     Route: 048
  9. UPTRAVI [Suspect]
     Active Substance: SELEXIPAG
     Dosage: 1600 MCG, BID
     Route: 048
     Dates: end: 201911

REACTIONS (20)
  - Fatigue [Unknown]
  - Vomiting [Unknown]
  - Muscle spasms [Unknown]
  - Dizziness [Unknown]
  - Nausea [Unknown]
  - Renal failure [Unknown]
  - Dizziness postural [Unknown]
  - Headache [Unknown]
  - Hepatic encephalopathy [Unknown]
  - Myalgia [Unknown]
  - Condition aggravated [Unknown]
  - Bone pain [Unknown]
  - Productive cough [Unknown]
  - Product administration error [Unknown]
  - Dyspnoea [Unknown]
  - Pain [Unknown]
  - Pain in extremity [Unknown]
  - Heart rate increased [Unknown]
  - Dyspnoea exertional [Not Recovered/Not Resolved]
  - Oedema peripheral [Unknown]

NARRATIVE: CASE EVENT DATE: 20180814
